FAERS Safety Report 14173379 (Version 7)
Quarter: 2018Q4

REPORT INFORMATION
  Report Type: Report from Study
  Country: None (occurrence: US)
  Receive Date: 20171109
  Receipt Date: 20181127
  Transmission Date: 20190204
  Serious: Yes (Hospitalization, Other)
  Sender: FDA-Public Use
  Company Number: US-ABBVIE-17K-163-1882564-00

PATIENT
  Sex: Male

DRUGS (1)
  1. HUMIRA [Suspect]
     Active Substance: ADALIMUMAB
     Indication: CROHN^S DISEASE
     Route: 058

REACTIONS (26)
  - Procedural haemorrhage [Unknown]
  - Pyrexia [Unknown]
  - Injection site swelling [Unknown]
  - Procedural intestinal perforation [Unknown]
  - Palpitations [Unknown]
  - Tachycardia [Unknown]
  - Gastrointestinal inflammation [Unknown]
  - Fatigue [Unknown]
  - Crohn^s disease [Recovered/Resolved]
  - Pneumonia [Recovered/Resolved]
  - Nail injury [Unknown]
  - Clostridium difficile infection [Unknown]
  - Abdominal discomfort [Unknown]
  - Crohn^s disease [Unknown]
  - Upper respiratory tract infection [Unknown]
  - Influenza [Unknown]
  - Arthritis enteropathic [Unknown]
  - Injection site vesicles [Unknown]
  - Road traffic accident [Unknown]
  - Injection site pain [Unknown]
  - Pneumonia [Unknown]
  - Fall [Unknown]
  - Sepsis [Unknown]
  - Sinusitis [Unknown]
  - Tooth fracture [Unknown]
  - Bronchitis [Unknown]

NARRATIVE: CASE EVENT DATE: 2018
